FAERS Safety Report 17185913 (Version 1)
Quarter: 2019Q4

REPORT INFORMATION
  Report Type: Spontaneous
  Country: IT (occurrence: IT)
  Receive Date: 20191220
  Receipt Date: 20191220
  Transmission Date: 20200122
  Serious: Yes (Other)
  Sender: FDA-Public Use
  Company Number: IT-SA-2019SA351544

PATIENT
  Age: 2 Year
  Sex: Male

DRUGS (2)
  1. EFTRENONACOG ALFA [Suspect]
     Active Substance: EFTRENONACOG ALFA
     Dosage: 1000 IU, QD FOR 4 DAYS
     Route: 042
     Dates: start: 201912
  2. EFTRENONACOG ALFA [Suspect]
     Active Substance: EFTRENONACOG ALFA
     Indication: FACTOR VIII DEFICIENCY
     Dosage: 1000 IU, QW
     Route: 042
     Dates: start: 2018

REACTIONS (2)
  - Haemarthrosis [Unknown]
  - Off label use [Unknown]

NARRATIVE: CASE EVENT DATE: 20191213
